FAERS Safety Report 5825557-5 (Version None)
Quarter: 2008Q3

REPORT INFORMATION
  Report Type: 
  Country: None (occurrence: None)
  Receive Date: 20080729
  Receipt Date: 20080718
  Transmission Date: 20090109
  Serious: Yes (Hospitalization)
  Sender: FDA-Public Use
  Company Number: CO-AMGEN-UK296089

PATIENT
  Age: 21 Year
  Sex: Male
  Weight: 55 kg

DRUGS (5)
  1. NEULASTIM [Suspect]
     Indication: CHEMOTHERAPY
     Route: 058
     Dates: start: 20080617
  2. CISPLATIN [Concomitant]
     Route: 042
     Dates: start: 20080101
  3. ETOPOSIDE [Concomitant]
     Route: 042
     Dates: start: 20080101
  4. MESNA [Concomitant]
     Dates: start: 20080101
  5. DEXAMETHASONE [Concomitant]
     Dates: start: 20080101

REACTIONS (3)
  - CYANOSIS [None]
  - DYSPNOEA [None]
  - MUSCULOSKELETAL PAIN [None]
